FAERS Safety Report 10094085 (Version 3)
Quarter: 2015Q2

REPORT INFORMATION
  Report Type: Report from Study
  Country: FR (occurrence: FR)
  Receive Date: 20140422
  Receipt Date: 20150424
  Transmission Date: 20150821
  Serious: Yes (Hospitalization)
  Sender: FDA-Public Use
  Company Number: FR-ROCHE-1161315

PATIENT
  Age: 50 Year
  Sex: Female

DRUGS (23)
  1. AZATHIOPRINE. [Concomitant]
     Active Substance: AZATHIOPRINE
     Route: 065
  2. CORTANCYL [Concomitant]
     Active Substance: PREDNISONE
     Route: 065
  3. APRANAX [Concomitant]
     Active Substance: NAPROXEN
     Route: 065
  4. METHYLPREDNISOLONE. [Concomitant]
     Active Substance: METHYLPREDNISOLONE
     Route: 065
  5. PARACETAMOL [Concomitant]
     Active Substance: ACETAMINOPHEN
  6. RITUXIMAB [Suspect]
     Active Substance: RITUXIMAB
     Indication: RHEUMATOID ARTHRITIS
     Dosage: DAY 1
     Route: 042
     Dates: start: 20061208
  7. MYOLASTAN [Concomitant]
     Active Substance: TETRAZEPAM
  8. RITUXIMAB [Suspect]
     Active Substance: RITUXIMAB
     Dosage: D15
     Route: 042
     Dates: start: 20061222
  9. IMOVANE [Concomitant]
     Active Substance: ZOPICLONE
  10. OXYNORM [Concomitant]
     Active Substance: OXYCODONE HYDROCHLORIDE
  11. CORTANCYL [Concomitant]
     Active Substance: PREDNISONE
     Route: 065
  12. MOPRAL [Concomitant]
     Active Substance: OMEPRAZOLE SODIUM
  13. ATARAX [Concomitant]
     Active Substance: HYDROXYZINE\HYDROXYZINE HYDROCHLORIDE
  14. IMUREL [Concomitant]
     Active Substance: AZATHIOPRINE SODIUM
  15. RITUXIMAB [Suspect]
     Active Substance: RITUXIMAB
     Dosage: D1
     Route: 042
     Dates: start: 20071204
  16. RITUXIMAB [Suspect]
     Active Substance: RITUXIMAB
     Dosage: D1
     Route: 042
     Dates: start: 20080506
  17. CORTANCYL [Concomitant]
     Active Substance: PREDNISONE
     Route: 065
  18. EFFEXOR [Concomitant]
     Active Substance: VENLAFAXINE HYDROCHLORIDE
  19. NEURONTIN [Concomitant]
     Active Substance: GABAPENTIN
  20. DOLIPRANE [Concomitant]
     Active Substance: ACETAMINOPHEN
  21. FORLAX [Concomitant]
     Active Substance: POLYETHYLENE GLYCOL 4000
  22. OXYCONTIN [Concomitant]
     Active Substance: OXYCODONE HYDROCHLORIDE
  23. RITUXIMAB [Suspect]
     Active Substance: RITUXIMAB
     Dosage: D15
     Route: 042
     Dates: start: 20080521

REACTIONS (29)
  - Infusion related reaction [Recovered/Resolved]
  - Pyrexia [Recovered/Resolved]
  - Fall [Unknown]
  - Fungal skin infection [Recovered/Resolved]
  - Pyrexia [Recovered/Resolved]
  - Anxiety [Not Recovered/Not Resolved]
  - Tooth disorder [Recovered/Resolved]
  - Tooth abscess [Recovered/Resolved]
  - Autonomic nervous system imbalance [Recovering/Resolving]
  - Urinary tract infection [Recovered/Resolved]
  - Supraventricular tachycardia [Recovering/Resolving]
  - Pulmonary mass [Not Recovered/Not Resolved]
  - Malaise [Not Recovered/Not Resolved]
  - Vomiting [Recovered/Resolved]
  - Skin candida [Recovering/Resolving]
  - Intra-abdominal haematoma [Not Recovered/Not Resolved]
  - Urinary tract infection [Recovered/Resolved]
  - Head injury [Not Recovered/Not Resolved]
  - Diarrhoea [Recovered/Resolved]
  - Anaemia [Not Recovered/Not Resolved]
  - Arthralgia [Not Recovered/Not Resolved]
  - Osteoarthritis [Not Recovered/Not Resolved]
  - Hypertension [Recovered/Resolved]
  - Fungal infection [Not Recovered/Not Resolved]
  - Renal colic [Recovered/Resolved]
  - Cardiac disorder [Not Recovered/Not Resolved]
  - Dyslipidaemia [Unknown]
  - Depression [Not Recovered/Not Resolved]
  - Dyspnoea [Recovering/Resolving]

NARRATIVE: CASE EVENT DATE: 20061208
